FAERS Safety Report 16627755 (Version 4)
Quarter: 2019Q4

REPORT INFORMATION
  Report Type: Spontaneous
  Country: US (occurrence: US)
  Receive Date: 20190724
  Receipt Date: 20191125
  Transmission Date: 20200122
  Serious: Yes (Hospitalization)
  Sender: FDA-Public Use
  Company Number: US-JNJFOC-20190627969

PATIENT
  Age: 82 Year
  Sex: Female

DRUGS (3)
  1. XARELTO [Suspect]
     Active Substance: RIVAROXABAN
     Indication: THROMBOSIS PROPHYLAXIS
  2. XARELTO [Suspect]
     Active Substance: RIVAROXABAN
     Indication: CEREBROVASCULAR ACCIDENT PROPHYLAXIS
  3. XARELTO [Suspect]
     Active Substance: RIVAROXABAN
     Indication: ATRIAL FIBRILLATION
     Route: 048
     Dates: start: 201401, end: 20151214

REACTIONS (6)
  - Vaginal haemorrhage [Unknown]
  - Renal haemorrhage [Unknown]
  - Epistaxis [Unknown]
  - Uterine haemorrhage [Unknown]
  - Upper gastrointestinal haemorrhage [Unknown]
  - Haemoptysis [Unknown]

NARRATIVE: CASE EVENT DATE: 201506
